FAERS Safety Report 10042818 (Version 2)
Quarter: 2014Q1

REPORT INFORMATION
  Report Type: Spontaneous
  Country: US (occurrence: US)
  Receive Date: 20140327
  Receipt Date: 20140327
  Transmission Date: 20141002
  Serious: No
  Sender: FDA-Public Use
  Company Number: US-GALDERMA-US13002637

PATIENT
  Sex: Female
  Weight: 70 kg

DRUGS (4)
  1. CLOBEX (CLOBETASOL PROPIONATE) SHAMPOO, 0.05% [Suspect]
     Indication: PRURITUS
     Route: 061
  2. CLOBEX (CLOBETASOL PROPIONATE) SHAMPOO, 0.05% [Suspect]
     Indication: SEBORRHOEA
  3. CLOBETASOL TOPICAL SOLUTION [Suspect]
     Indication: PRURITUS
     Route: 061
  4. CLOBETASOL TOPICAL SOLUTION [Suspect]
     Indication: SEBORRHOEA

REACTIONS (2)
  - Drug ineffective for unapproved indication [Unknown]
  - Off label use [Unknown]
